FAERS Safety Report 16165983 (Version 1)
Quarter: 2019Q2

REPORT INFORMATION
  Report Type: Spontaneous
  Country: GB (occurrence: GB)
  Receive Date: 20190406
  Receipt Date: 20190406
  Transmission Date: 20190711
  Serious: Yes (Disabling, Other)
  Sender: FDA-Public Use
  Company Number: GB-ACCORD-118615

PATIENT
  Age: 80 Year
  Sex: Female
  Weight: 80.8 kg

DRUGS (16)
  1. CODEINE [Concomitant]
     Active Substance: CODEINE
     Dosage: ONE OR TWO TO BE TAKEN UP TO EIGHT TIMES A DAY
     Dates: start: 20190129
  2. RANITIDINE. [Concomitant]
     Active Substance: RANITIDINE
     Dates: start: 20181217
  3. ATORVASTATIN [Concomitant]
     Active Substance: ATORVASTATIN
     Dosage: EVENING
     Dates: start: 20190102
  4. LAXIDO [Concomitant]
     Active Substance: POLYETHYLENE GLYCOL 3350\POTASSIUM CHLORIDE\SODIUM BICARBONATE\SODIUM CHLORIDE
     Dosage: CAN BE INCREASED UP TO SIX SACHETS IF NEEDED
     Route: 048
     Dates: start: 20190118
  5. HIPREX [Concomitant]
     Active Substance: METHENAMINE HIPPURATE
     Dates: start: 20181108
  6. RAMIPRIL. [Concomitant]
     Active Substance: RAMIPRIL
     Dates: start: 20190102
  7. PREDNISOLONE. [Concomitant]
     Active Substance: PREDNISOLONE
     Dates: start: 20181105
  8. CLOPIDOGREL [Concomitant]
     Active Substance: CLOPIDOGREL BISULFATE
     Dosage: FOR 12 MONTHS
     Dates: start: 20190102
  9. LOPERAMIDE [Concomitant]
     Active Substance: LOPERAMIDE
     Dates: start: 20181109
  10. EPLERENONE. [Suspect]
     Active Substance: EPLERENONE
     Indication: CARDIAC DISORDER
  11. PARACETAMOL [Concomitant]
     Active Substance: ACETAMINOPHEN
     Dosage: FOUR TIMES DAILY
     Dates: start: 20190109
  12. FUROSEMIDE. [Concomitant]
     Active Substance: FUROSEMIDE
     Dates: start: 20190102
  13. ENTOCORT [Concomitant]
     Active Substance: BUDESONIDE
     Dates: start: 20181130
  14. ACETYLSALICYLIC ACID [Concomitant]
     Active Substance: ASPIRIN
     Dates: start: 20190118
  15. BETMIGA [Concomitant]
     Active Substance: MIRABEGRON
     Dates: start: 20190109
  16. OMEPRAZOLE. [Concomitant]
     Active Substance: OMEPRAZOLE
     Dates: start: 20181227

REACTIONS (4)
  - Abnormal loss of weight [Recovered/Resolved]
  - Anaemia [Recovered/Resolved]
  - Diarrhoea [Recovered/Resolved]
  - Colitis [Recovered/Resolved]

NARRATIVE: CASE EVENT DATE: 20181102
